FAERS Safety Report 6472090-6 (Version None)
Quarter: 2009Q4

REPORT INFORMATION
  Report Type: 
  Country: None (occurrence: None)
  Receive Date: 20091203
  Receipt Date: 20080527
  Transmission Date: 20100525
  Serious: Yes (Hospitalization, Other)
  Sender: FDA-Public Use
  Company Number: US-ELI_LILLY_AND_COMPANY-US200804003764

PATIENT
  Age: 67 Year
  Sex: Female
  Weight: 75.737 kg

DRUGS (7)
  1. BYETTA [Suspect]
     Indication: TYPE 2 DIABETES MELLITUS
     Dosage: 5 UG, 2/D
     Route: 065
     Dates: start: 20050812, end: 20050923
  2. BYETTA [Suspect]
     Dosage: 10 UG, 2/D
     Dates: start: 20050924, end: 20080401
  3. DIOVAN [Concomitant]
  4. PLAVIX [Concomitant]
  5. METFORMIN HCL [Concomitant]
  6. GLYBURIDE [Concomitant]
  7. CARDIZEM [Concomitant]

REACTIONS (8)
  - DEHYDRATION [None]
  - DIABETIC NEPHROPATHY [None]
  - DYSLIPIDAEMIA [None]
  - HEPATITIS [None]
  - HYPERKALAEMIA [None]
  - HYPEROSMOLAR STATE [None]
  - PANCREATITIS [None]
  - WEIGHT DECREASED [None]
